FAERS Safety Report 17500516 (Version 3)
Quarter: 2020Q2

REPORT INFORMATION
  Report Type: Report from Study
  Country: US (occurrence: US)
  Receive Date: 20200305
  Receipt Date: 20200612
  Transmission Date: 20200713
  Serious: No
  Sender: FDA-Public Use
  Company Number: NVSC2020US063518

PATIENT
  Age: 46 Year
  Sex: Male

DRUGS (2)
  1. COSENTYX [Suspect]
     Active Substance: SECUKINUMAB
     Indication: PSORIATIC ARTHROPATHY
     Dosage: 300 MG, QMO
     Route: 058
     Dates: start: 201912
  2. METHOTREXATE. [Suspect]
     Active Substance: METHOTREXATE
     Indication: PRODUCT USED FOR UNKNOWN INDICATION
     Dosage: UNK
     Route: 065

REACTIONS (7)
  - Dyspepsia [Not Recovered/Not Resolved]
  - Hypoaesthesia [Recovered/Resolved]
  - Incorrect product administration duration [Unknown]
  - Pain in extremity [Recovered/Resolved]
  - Inflammation [Unknown]
  - Neuralgia [Recovered/Resolved]
  - Peripheral swelling [Unknown]

NARRATIVE: CASE EVENT DATE: 201912
